FAERS Safety Report 4515521-0 (Version None)
Quarter: 2004Q4

REPORT INFORMATION
  Report Type: 
  Country: None (occurrence: None)
  Receive Date: 20041126
  Receipt Date: 20041111
  Transmission Date: 20050328
  Serious: Yes (Hospitalization)
  Sender: FDA-Public Use
  Company Number: 207672

PATIENT
  Sex: Female

DRUGS (1)
  1. AVONEX [Suspect]
     Indication: MULTIPLE SCLEROSIS
     Dosage: IM
     Route: 030
     Dates: start: 19970101, end: 19980101

REACTIONS (5)
  - ARTHRALGIA [None]
  - BACK PAIN [None]
  - LIGAMENT INJURY [None]
  - MUSCULAR WEAKNESS [None]
  - VERTIGO [None]
